FAERS Safety Report 10716104 (Version 10)
Quarter: 2016Q4

REPORT INFORMATION
  Report Type: Report from Study
  Country: DE (occurrence: DE)
  Receive Date: 20150116
  Receipt Date: 20161012
  Transmission Date: 20170206
  Serious: Yes (Hospitalization)
  Sender: FDA-Public Use
  Company Number: PHHY2015DE004337

PATIENT
  Age: 67 Year
  Sex: Female
  Weight: 68 kg

DRUGS (20)
  1. ALLOPURINOL. [Concomitant]
     Active Substance: ALLOPURINOL
     Indication: HYPERURICAEMIA
     Dosage: 100 MG, QD
     Route: 065
  2. SULTANOL [Concomitant]
     Active Substance: ALBUTEROL SULFATE
     Indication: CHRONIC OBSTRUCTIVE PULMONARY DISEASE
     Dosage: 3 DF, QD (3 PUFFS)
     Route: 065
  3. AMLODIPINE [Concomitant]
     Active Substance: AMLODIPINE BESYLATE
     Indication: HYPERTENSION
     Dosage: 5 MG, QD
     Route: 065
     Dates: end: 20150624
  4. IPRATROPIUMBROMID ARROW [Concomitant]
     Indication: CHRONIC OBSTRUCTIVE PULMONARY DISEASE
     Dosage: 3 DF, QD
     Route: 065
  5. CANDESARTAN [Concomitant]
     Active Substance: CANDESARTAN
     Indication: HYPERTENSION
     Dosage: 32 MG, QD
     Route: 065
  6. COTRIM FORTE [Concomitant]
     Active Substance: SULFAMETHOXAZOLE\TRIMETHOPRIM
     Indication: CHRONIC OBSTRUCTIVE PULMONARY DISEASE
     Dosage: UNK
     Route: 065
     Dates: end: 201407
  7. NITROLINGUAL [Concomitant]
     Active Substance: NITROGLYCERIN
     Indication: HYPERTENSION
     Dosage: ON REQUESTED
     Route: 065
     Dates: start: 20150625
  8. DEKRISTOL [Concomitant]
     Active Substance: CHOLECALCIFEROL
     Indication: PROPHYLAXIS
     Route: 065
  9. SPIRIVA [Concomitant]
     Active Substance: TIOTROPIUM BROMIDE MONOHYDRATE
     Indication: CHRONIC OBSTRUCTIVE PULMONARY DISEASE
     Dosage: 2 DF, QD (2 PUFFS)
     Route: 065
  10. FORAIR//FORMOTEROL FUMARATE [Concomitant]
     Indication: CHRONIC OBSTRUCTIVE PULMONARY DISEASE
     Dosage: 2 DF, QD (2 PUFFS)
     Route: 065
  11. OMEPRAZOLE. [Concomitant]
     Active Substance: OMEPRAZOLE
     Indication: PRODUCT USED FOR UNKNOWN INDICATION
     Dosage: 40 MG, QD
     Route: 065
  12. DAXAS [Concomitant]
     Active Substance: ROFLUMILAST
     Indication: CHRONIC OBSTRUCTIVE PULMONARY DISEASE
     Dosage: 1000 UG, QD
     Route: 065
  13. ALVESCO [Concomitant]
     Active Substance: CICLESONIDE
     Indication: CHRONIC OBSTRUCTIVE PULMONARY DISEASE
     Dosage: 1 PUFF, QD
     Route: 065
  14. SALBUTAMOL [Concomitant]
     Active Substance: ALBUTEROL
     Indication: CHRONIC OBSTRUCTIVE PULMONARY DISEASE
     Route: 065
     Dates: start: 20140625
  15. ACICLOVIR [Concomitant]
     Active Substance: ACYCLOVIR
     Indication: PROPHYLAXIS
     Dosage: 800 MG, QD
     Route: 065
     Dates: end: 201407
  16. PROCORALAN [Concomitant]
     Active Substance: IVABRADINE
     Indication: HYPERTENSION
     Dosage: 10 MG, QD
     Route: 065
     Dates: start: 20140625
  17. ENOXAPARIN [Concomitant]
     Active Substance: ENOXAPARIN
     Indication: THROMBOSIS PROPHYLAXIS
     Dosage: 40 MG, QD
     Route: 065
     Dates: start: 201407
  18. TASIGNA [Suspect]
     Active Substance: NILOTINIB
     Indication: CHRONIC MYELOID LEUKAEMIA
     Dosage: 600 MG, QD
     Route: 048
     Dates: start: 20140625
  19. AMLODIPINE [Concomitant]
     Active Substance: AMLODIPINE BESYLATE
     Dosage: 6.25 UNK, UNK
     Route: 065
     Dates: start: 20150625
  20. DECORTIN [Concomitant]
     Active Substance: PREDNISONE
     Indication: CHRONIC OBSTRUCTIVE PULMONARY DISEASE
     Dosage: 20 MG, QD
     Route: 065
     Dates: start: 20140620, end: 20140720

REACTIONS (21)
  - Overdose [Recovered/Resolved]
  - Oesophageal candidiasis [Recovered/Resolved]
  - Nausea [Recovered/Resolved]
  - Dyspnoea [Recovered/Resolved]
  - Chronic obstructive pulmonary disease [Recovered/Resolved]
  - Vomiting [Recovered/Resolved]
  - Productive cough [Recovered/Resolved]
  - Panic disorder [Recovering/Resolving]
  - Tachycardia [Recovered/Resolved]
  - Blood glucose increased [Unknown]
  - Aspartate aminotransferase increased [Unknown]
  - Hypertensive crisis [Recovered/Resolved]
  - Pneumonia [Recovered/Resolved]
  - Reactive gastropathy [Recovered/Resolved]
  - C-reactive protein increased [Unknown]
  - Anxiety disorder [Recovering/Resolving]
  - Hypertensive crisis [Recovered/Resolved]
  - Gamma-glutamyltransferase increased [Unknown]
  - Blood lactate dehydrogenase increased [Unknown]
  - General physical health deterioration [Unknown]
  - Varicose vein [Not Recovered/Not Resolved]

NARRATIVE: CASE EVENT DATE: 201412
